FAERS Safety Report 17143110 (Version 2)
Quarter: 2019Q4

REPORT INFORMATION
  Report Type: Report from Study
  Country: US (occurrence: US)
  Receive Date: 20191211
  Receipt Date: 20191230
  Transmission Date: 20200122
  Serious: Yes (Hospitalization, Other)
  Sender: FDA-Public Use
  Company Number: US-VIFOR (INTERNATIONAL) INC.-VIT-2019-03019

PATIENT
  Sex: Male

DRUGS (17)
  1. BIOTIN [Concomitant]
     Active Substance: BIOTIN
  2. CARBIDOPA/LEVODOPA [Concomitant]
     Active Substance: CARBIDOPA\LEVODOPA
  3. ULORIC [Concomitant]
     Active Substance: FEBUXOSTAT
  4. VELTASSA [Suspect]
     Active Substance: PATIROMER
     Indication: HYPERKALAEMIA
     Route: 048
     Dates: start: 20180808
  5. VELTASSA [Suspect]
     Active Substance: PATIROMER
     Route: 048
     Dates: start: 20180708
  6. CALCITRIOL. [Concomitant]
     Active Substance: CALCITRIOL
  7. SPIRIVA [Concomitant]
     Active Substance: TIOTROPIUM BROMIDE MONOHYDRATE
  8. ATORVASTATIN [Concomitant]
     Active Substance: ATORVASTATIN
  9. RENVELA [Concomitant]
     Active Substance: SEVELAMER CARBONATE
  10. PROAIR HFA [Concomitant]
     Active Substance: ALBUTEROL SULFATE
  11. FUROSEMIDE. [Concomitant]
     Active Substance: FUROSEMIDE
  12. LIDOCAINE. [Concomitant]
     Active Substance: LIDOCAINE
  13. MONTELUKAST [Concomitant]
     Active Substance: MONTELUKAST SODIUM
  14. ALBUTEROL. [Concomitant]
     Active Substance: ALBUTEROL
  15. COLCHICINE. [Concomitant]
     Active Substance: COLCHICINE
  16. LYRICA [Concomitant]
     Active Substance: PREGABALIN
  17. PROTONIX [Concomitant]
     Active Substance: PANTOPRAZOLE SODIUM

REACTIONS (2)
  - Blood potassium increased [Recovered/Resolved]
  - Large intestine perforation [Recovering/Resolving]

NARRATIVE: CASE EVENT DATE: 2019
